FAERS Safety Report 8286997-0 (Version None)
Quarter: 2012Q2

REPORT INFORMATION
  Report Type: 
  Country: None (occurrence: None)
  Receive Date: 20120416
  Receipt Date: 20120411
  Transmission Date: 20120825
  Serious: Yes (Hospitalization)
  Sender: FDA-Public Use
  Company Number: DE-GENZYME-CAMP-1002201

PATIENT
  Sex: Female

DRUGS (8)
  1. CAMPATH [Suspect]
     Dosage: 30 MG, ONCE
     Route: 058
     Dates: start: 20120313, end: 20120313
  2. CAMPATH [Suspect]
     Dosage: 30 MG, ONCE
     Route: 058
     Dates: start: 20120329, end: 20120329
  3. DEXAMETHASONE [Suspect]
     Indication: CHRONIC LYMPHOCYTIC LEUKAEMIA
     Dosage: 40 MG, ONCE
     Route: 048
     Dates: start: 20120123, end: 20120123
  4. DEXAMETHASONE [Suspect]
     Dosage: 40 MG, ONCE
     Route: 048
     Dates: start: 20120329, end: 20120329
  5. PEGFILGRASTIM [Suspect]
     Indication: NEUTROPENIA
     Dosage: 6 MG, ONCE
     Route: 058
     Dates: start: 20120123, end: 20120123
  6. DEXAMETHASONE [Suspect]
     Dosage: 40 MG, ONCE
     Route: 048
     Dates: start: 20120308, end: 20120308
  7. CAMPATH [Suspect]
     Indication: CHRONIC LYMPHOCYTIC LEUKAEMIA
     Dosage: 30 MG, ONCE
     Route: 058
     Dates: start: 20120123, end: 20120123
  8. PEGFILGRASTIM [Suspect]
     Dosage: 6 MG, ONCE
     Route: 058
     Dates: start: 20120306, end: 20120306

REACTIONS (1)
  - CEREBROVASCULAR ACCIDENT [None]
